FAERS Safety Report 17290275 (Version 5)
Quarter: 2020Q4

REPORT INFORMATION
  Report Type: Report from Study
  Country: US (occurrence: US)
  Receive Date: 20200121
  Receipt Date: 20201206
  Transmission Date: 20210113
  Serious: Yes (Other)
  Sender: FDA-Public Use
  Company Number: US-ROCHE-2525809

PATIENT
  Age: 51 Year
  Sex: Female
  Weight: 75.9 kg

DRUGS (23)
  1. OBINUTUZUMAB. [Suspect]
     Active Substance: OBINUTUZUMAB
     Indication: B-CELL LYMPHOMA
     Dosage: ON 25/SEP/2019, SHE RECEIVED LAST DOSE OF INTRAVENOUS OBINUTUZUMAB PRIOR TO THE ONSET OF SERIOUS ADV
     Route: 042
     Dates: start: 20190830, end: 20190925
  2. VARENICLINE [Concomitant]
     Active Substance: VARENICLINE
  3. CETIRIZINE [Concomitant]
     Active Substance: CETIRIZINE HYDROCHLORIDE
  4. DICLOFENAC [Concomitant]
     Active Substance: DICLOFENAC
  5. FLUTICASONE. [Concomitant]
     Active Substance: FLUTICASONE
  6. GLYCOPYRROLATE. [Concomitant]
     Active Substance: GLYCOPYRROLATE
  7. TIZANIDINE. [Concomitant]
     Active Substance: TIZANIDINE
  8. ALBUTEROL. [Concomitant]
     Active Substance: ALBUTEROL
  9. RITUXIMAB. [Concomitant]
     Active Substance: RITUXIMAB
     Route: 065
  10. TGR 1202 [Suspect]
     Active Substance: UMBRALISIB
     Indication: B-CELL LYMPHOMA
     Dosage: ON 18/OCT/2019, SHE RECEIVED LAST DOSE OF ORAL TGR 1202 PRIOR TO THE ONSET OF SERIOUS ADVERSE EVENT
     Route: 048
     Dates: start: 20190830, end: 20191018
  11. GLIMEPIRIDE. [Concomitant]
     Active Substance: GLIMEPIRIDE
  12. NAPROXEN. [Concomitant]
     Active Substance: NAPROXEN
  13. OMEPRAZOLE. [Concomitant]
     Active Substance: OMEPRAZOLE
  14. ONDANSETRON [Concomitant]
     Active Substance: ONDANSETRON
  15. ATORVASTATIN [Concomitant]
     Active Substance: ATORVASTATIN
  16. TERBINAFINE. [Concomitant]
     Active Substance: TERBINAFINE
  17. BENDAMUSTINE HYDROCHLORIDE. [Concomitant]
     Active Substance: BENDAMUSTINE HYDROCHLORIDE
  18. IPRATROPIUM [Concomitant]
     Active Substance: IPRATROPIUM
  19. LISINOPRIL. [Concomitant]
     Active Substance: LISINOPRIL
  20. MONTELUKAST [Concomitant]
     Active Substance: MONTELUKAST SODIUM
  21. SUCRALFATE. [Concomitant]
     Active Substance: SUCRALFATE
  22. GABAPENTIN. [Concomitant]
     Active Substance: GABAPENTIN
  23. HYDROCODONE/ACETAMINOPHEN [Concomitant]
     Active Substance: ACETAMINOPHEN\HYDROCODONE

REACTIONS (2)
  - Pain in extremity [Not Recovered/Not Resolved]
  - Muscular weakness [Not Recovered/Not Resolved]

NARRATIVE: CASE EVENT DATE: 20191018
